FAERS Safety Report 7100055-X (Version None)
Quarter: 2010Q4

REPORT INFORMATION
  Report Type: 
  Country: None (occurrence: None)
  Receive Date: 20101112
  Receipt Date: 20101101
  Transmission Date: 20110411
  Serious: Yes (Hospitalization)
  Sender: FDA-Public Use
  Company Number: US-ELI_LILLY_AND_COMPANY-US201011001642

PATIENT
  Sex: Male

DRUGS (13)
  1. EFFIENT [Suspect]
     Dosage: UNK, UNKNOWN
     Route: 065
  2. GLUCOPHAGE [Concomitant]
     Dosage: UNK, UNKNOWN
     Route: 065
  3. ACTOS [Concomitant]
     Dosage: UNK, UNKNOWN
     Route: 065
  4. LISINOPRIL AND HYDROCHLOROTHIAZIDE [Concomitant]
     Dosage: UNK, UNKNOWN
     Route: 065
  5. ATENOLOL [Concomitant]
     Dosage: UNK, UNKNOWN
     Route: 065
  6. IMDUR [Concomitant]
     Dosage: UNK, UNKNOWN
     Route: 065
  7. ASPIRIN [Concomitant]
     Dosage: UNK, UNKNOWN
     Route: 065
  8. NEURONTIN [Concomitant]
     Dosage: UNK, UNKNOWN
     Route: 065
  9. ADVAIR DISKUS 100/50 [Concomitant]
     Dosage: UNK, UNKNOWN
     Route: 065
  10. CRESTOR [Concomitant]
     Dosage: UNK, UNKNOWN
     Route: 065
  11. MOTRIN [Concomitant]
     Dosage: UNK, UNKNOWN
     Route: 065
     Dates: start: 20100507
  12. AVODART [Concomitant]
     Dosage: UNK, UNKNOWN
     Route: 065
     Dates: start: 20100608
  13. SYSTANE [Concomitant]
     Dosage: UNK, UNKNOWN
     Route: 065
     Dates: start: 20100823

REACTIONS (1)
  - CHEST PAIN [None]
